FAERS Safety Report 5311754-4 (Version None)
Quarter: 2007Q2

REPORT INFORMATION
  Report Type: 
  Country: None (occurrence: None)
  Receive Date: 20070426
  Receipt Date: 20070426
  Transmission Date: 20071010
  Serious: Yes (Other)
  Sender: FDA-Public Use
  Company Number: None

PATIENT
  Age: 22 Year
  Sex: Female
  Weight: 108.1 kg

DRUGS (1)
  1. OMNIPAQUE 140 [Suspect]
     Indication: LUNG NEOPLASM
     Dosage: 140ML IV ONCE
     Route: 042
     Dates: start: 20070119

REACTIONS (2)
  - CONTRAST MEDIA ALLERGY [None]
  - DYSPNOEA [None]
